FAERS Safety Report 25199794 (Version 1)
Quarter: 2025Q2

REPORT INFORMATION
  Report Type: Spontaneous
  Country: US (occurrence: None)
  Receive Date: 20250415
  Receipt Date: 20250415
  Transmission Date: 20250716
  Serious: Yes (Hospitalization)
  Sender: FDA-CTU
  Company Number: None

PATIENT
  Age: 81 Year
  Sex: Female
  Weight: 61.6 kg

DRUGS (1)
  1. ROCEPHIN [Suspect]
     Active Substance: CEFTRIAXONE SODIUM
     Indication: Urinary tract infection
     Dates: start: 20250403, end: 20250403

REACTIONS (5)
  - Vomiting [None]
  - Cardiac arrest [None]
  - Burning sensation [None]
  - Unresponsive to stimuli [None]
  - Acute myocardial infarction [None]

NARRATIVE: CASE EVENT DATE: 20250403
